FAERS Safety Report 4953855-6 (Version None)
Quarter: 2006Q1

REPORT INFORMATION
  Report Type: 
  Country: None (occurrence: None)
  Receive Date: 20060321
  Receipt Date: 20060308
  Transmission Date: 20060701
  Serious: No
  Sender: FDA-Public Use
  Company Number: 2006-DE-01276GD

PATIENT
  Age: 3 Month
  Sex: Male

DRUGS (6)
  1. PARACETAMOL (PARACETAMOL) [Suspect]
     Indication: NASOPHARYNGITIS
  2. DEXTROMETHORPHAN INGELHEIM [Suspect]
     Indication: NASOPHARYNGITIS
  3. PSEUDOEPHEDRINE HCL [Suspect]
     Indication: NASOPHARYNGITIS
  4. EPHEDRINE SUL CAP [Suspect]
     Indication: NASOPHARYNGITIS
  5. LEVORPHANOL (LEVORPHANOL) [Suspect]
     Indication: NASOPHARYNGITIS
  6. INFANT TYLENOL (PARACETAMOL) [Suspect]
     Indication: NASOPHARYNGITIS

REACTIONS (6)
  - DRUG TOXICITY [None]
  - LUNG DISORDER [None]
  - OVERDOSE [None]
  - PETECHIAE [None]
  - SUDDEN INFANT DEATH SYNDROME [None]
  - TOXICOLOGIC TEST ABNORMAL [None]
